FAERS Safety Report 19389669 (Version 1)
Quarter: 2021Q2

REPORT INFORMATION
  Report Type: Spontaneous
  Country: US (occurrence: US)
  Receive Date: 20210607
  Receipt Date: 20210607
  Transmission Date: 20210717
  Serious: Yes (Death)
  Sender: FDA-Public Use
  Company Number: None

PATIENT
  Sex: Male

DRUGS (1)
  1. TOBRAMYCIN 300MG/5ML TOBI GEQ [Suspect]
     Active Substance: TOBRAMYCIN
     Indication: MICROBIOLOGY TEST ABNORMAL
     Dosage: OTHER FREQUENCY:EVERY 12 HOURS;OTHER ROUTE:NEBULIZER?
     Dates: start: 20190711, end: 20210604

REACTIONS (1)
  - Death [None]
